FAERS Safety Report 5878538-X (Version None)
Quarter: 2008Q3

REPORT INFORMATION
  Report Type: 
  Country: None (occurrence: None)
  Receive Date: 20080909
  Receipt Date: 20080826
  Transmission Date: 20090109
  Serious: Yes (Hospitalization)
  Sender: FDA-Public Use
  Company Number: 8036718

PATIENT
  Age: 66 Year
  Sex: Female

DRUGS (2)
  1. KEPPRA [Suspect]
     Indication: EPILEPSY
     Dates: start: 20080723, end: 20080811
  2. SELECTIVE SEROTONIN REUPTAKE INHIBITORS [Suspect]
     Indication: DEPRESSION
     Dates: start: 20070101, end: 20080811

REACTIONS (3)
  - PLATELET COUNT DECREASED [None]
  - PNEUMONITIS [None]
  - RED BLOOD CELL COUNT DECREASED [None]
